FAERS Safety Report 15083752 (Version 5)
Quarter: 2019Q3

REPORT INFORMATION
  Report Type: Report from Study
  Country: US (occurrence: US)
  Receive Date: 20180628
  Receipt Date: 20190701
  Transmission Date: 20191004
  Serious: No
  Sender: FDA-Public Use
  Company Number: US-CLOVIS ONCOLOGY-CLO-2018-000405

PATIENT
  Age: 60 Year
  Sex: Female

DRUGS (6)
  1. RUBRACA [Suspect]
     Active Substance: RUCAPARIB CAMSYLATE
     Dosage: 300 MG, BID
     Route: 048
     Dates: start: 20180814
  2. RUBRACA [Suspect]
     Active Substance: RUCAPARIB CAMSYLATE
     Dosage: 300 MG AM/600 MG PM
     Dates: start: 2018, end: 2018
  3. RUBRACA [Suspect]
     Active Substance: RUCAPARIB CAMSYLATE
     Dosage: 400 MG, BID
     Dates: start: 20180715, end: 201808
  4. RUBRACA [Suspect]
     Active Substance: RUCAPARIB CAMSYLATE
     Dosage: 300 MG, BID
     Route: 048
     Dates: start: 201807
  5. RUBRACA [Suspect]
     Active Substance: RUCAPARIB CAMSYLATE
     Dosage: 500 MG, BID
     Route: 048
     Dates: start: 20180609
  6. RUBRACA [Suspect]
     Active Substance: RUCAPARIB CAMSYLATE
     Indication: OVARIAN CANCER
     Dosage: 600 MG, BID
     Route: 048
     Dates: start: 20180420, end: 20180714

REACTIONS (17)
  - Tumour marker increased [Not Recovered/Not Resolved]
  - Pulmonary congestion [Unknown]
  - Cough [Unknown]
  - Nausea [Recovering/Resolving]
  - Product dose omission [Unknown]
  - Red blood cell count decreased [Unknown]
  - Fatigue [Not Recovered/Not Resolved]
  - Decreased appetite [Not Recovered/Not Resolved]
  - Lymphadenopathy [Unknown]
  - Hepatic enzyme increased [Unknown]
  - Faeces discoloured [Unknown]
  - Platelet count decreased [Recovering/Resolving]
  - Abdominal pain [Unknown]
  - White blood cell count decreased [Recovering/Resolving]
  - Full blood count decreased [Unknown]
  - Anaemia [Not Recovered/Not Resolved]
  - Dizziness [Not Recovered/Not Resolved]

NARRATIVE: CASE EVENT DATE: 2018
